FAERS Safety Report 10639641 (Version 2)
Quarter: 2014Q4

REPORT INFORMATION
  Report Type: Spontaneous
  Country: US (occurrence: US)
  Receive Date: 20141209
  Receipt Date: 20141224
  Transmission Date: 20150529
  Serious: Yes (Hospitalization)
  Sender: FDA-Public Use
  Company Number: US-009507513-1412USA001878

PATIENT
  Age: 61 Year
  Sex: Male

DRUGS (2)
  1. KEYTRUDA [Suspect]
     Active Substance: PEMBROLIZUMAB
     Indication: MALIGNANT MELANOMA
     Dosage: THREE DOSES TOTALLY
     Dates: start: 2014, end: 2014
  2. KEYTRUDA [Suspect]
     Active Substance: PEMBROLIZUMAB
     Dosage: UNK
     Dates: start: 2014, end: 20141114

REACTIONS (4)
  - Asthenia [Unknown]
  - Facial paresis [Unknown]
  - Malaise [Unknown]
  - Flat affect [Unknown]

NARRATIVE: CASE EVENT DATE: 2014
